FAERS Safety Report 7335593-8 (Version None)
Quarter: 2011Q1

REPORT INFORMATION
  Report Type: 
  Country: None (occurrence: None)
  Receive Date: 20110301
  Receipt Date: 20110301
  Transmission Date: 20110831
  Serious: Yes (Other)
  Sender: FDA-Public Use
  Company Number: None

PATIENT
  Age: 32 Year
  Sex: Female
  Weight: 90.7194 kg

DRUGS (1)
  1. METRONIDAZOLE [Suspect]
     Indication: VAGINITIS BACTERIAL
     Dates: start: 20110207, end: 20110317

REACTIONS (6)
  - DRY MOUTH [None]
  - ORAL DISORDER [None]
  - ILL-DEFINED DISORDER [None]
  - NAUSEA [None]
  - DIARRHOEA [None]
  - HEADACHE [None]
